FAERS Safety Report 10479588 (Version 1)
Quarter: 2014Q3

REPORT INFORMATION
  Report Type: Spontaneous
  Country: AL (occurrence: AL)
  Receive Date: 20140927
  Receipt Date: 20140927
  Transmission Date: 20150326
  Serious: Yes (Other)
  Sender: FDA-Public Use
  Company Number: AL-PERRIGO-14AL009275

PATIENT
  Age: 8 Year
  Sex: Male

DRUGS (10)
  1. ACETAMINOPHEN 650MG ER 544 [Suspect]
     Active Substance: ACETAMINOPHEN
     Indication: ALLERGY TEST
     Dosage: 650 MG, SINGLE
     Route: 048
     Dates: start: 2013, end: 2013
  2. IBUPROFEN 200 MG 604 [Suspect]
     Active Substance: IBUPROFEN
     Indication: VIRAL INFECTION
     Dosage: 400 MG, UNK
     Route: 048
     Dates: start: 2011, end: 2011
  3. ACETAMINOPHEN. [Suspect]
     Active Substance: ACETAMINOPHEN
     Dosage: 500 MG, UNK
     Route: 048
     Dates: start: 201207, end: 201207
  4. ACETAMINOPHEN. [Suspect]
     Active Substance: ACETAMINOPHEN
     Indication: VIRAL INFECTION
     Dosage: 500 MG, UNK
     Route: 048
     Dates: start: 2011, end: 2011
  5. ACETAMINOPHEN. [Suspect]
     Active Substance: ACETAMINOPHEN
     Dosage: 1500 MG
     Route: 048
     Dates: start: 2013, end: 2013
  6. MEFENAMIC ACID. [Suspect]
     Active Substance: MEFENAMIC ACID
     Indication: PRODUCT USED FOR UNKNOWN INDICATION
     Dosage: 500 MG, UNK
     Route: 065
     Dates: start: 201207, end: 201207
  7. IBUPROFEN 200 MG 604 [Suspect]
     Active Substance: IBUPROFEN
     Dosage: 400 MG, UNK
     Route: 048
     Dates: start: 201207, end: 201207
  8. METAMIZOLE [Suspect]
     Active Substance: METAMIZOLE
     Indication: PRODUCT USED FOR UNKNOWN INDICATION
     Dosage: UNK
     Route: 065
     Dates: start: 2013, end: 2013
  9. IBUPROFEN 200 MG 604 [Suspect]
     Active Substance: IBUPROFEN
     Dosage: 400 MG, UNK
     Route: 048
     Dates: start: 2012, end: 2012
  10. ACETAMINOPHEN. [Suspect]
     Active Substance: ACETAMINOPHEN
     Dosage: 500 MG, UNK
     Route: 048
     Dates: start: 2012, end: 2012

REACTIONS (9)
  - Rhinorrhoea [Unknown]
  - Anaphylactic reaction [Recovered/Resolved]
  - Dyspnoea [Unknown]
  - Cough [Unknown]
  - Erythema [Unknown]
  - Ciliary hyperaemia [Recovered/Resolved]
  - Angioedema [Unknown]
  - Chest discomfort [Unknown]
  - Hypotension [Unknown]

NARRATIVE: CASE EVENT DATE: 2011
